FAERS Safety Report 17167858 (Version 1)
Quarter: 2019Q4

REPORT INFORMATION
  Report Type: Spontaneous
  Country: US (occurrence: US)
  Receive Date: 20191218
  Receipt Date: 20191218
  Transmission Date: 20200122
  Serious: No
  Sender: FDA-Public Use
  Company Number: NVSC2019US011118

PATIENT
  Sex: Female

DRUGS (1)
  1. EXELON PATCH [Suspect]
     Active Substance: RIVASTIGMINE
     Indication: ILEOSTOMY
     Dosage: UNK
     Route: 065

REACTIONS (5)
  - Product adhesion issue [Unknown]
  - Condition aggravated [Unknown]
  - Skin irritation [Unknown]
  - Memory impairment [Unknown]
  - Product use in unapproved indication [Unknown]
